FAERS Safety Report 4846306-3 (Version None)
Quarter: 2005Q4

REPORT INFORMATION
  Report Type: 
  Country: None (occurrence: None)
  Receive Date: 20051115
  Receipt Date: 20050927
  Transmission Date: 20060501
  Serious: Yes (Other)
  Sender: FDA-Public Use
  Company Number: 419398

PATIENT
  Age: 51 Year
  Sex: Female

DRUGS (2)
  1. PEGASYS (PEG-INTEFERON ALFA 2A) [Suspect]
     Indication: DRUG USE FOR UNKNOWN INDICATION
     Dates: end: 20050819
  2. COPEGUS [Suspect]
     Indication: DRUG USE FOR UNKNOWN INDICATION
     Dates: end: 20050819

REACTIONS (1)
  - HALLUCINATION, VISUAL [None]
